FAERS Safety Report 6996705-9 (Version None)
Quarter: 2010Q3

REPORT INFORMATION
  Report Type: 
  Country: None (occurrence: None)
  Receive Date: 20100918
  Receipt Date: 20090610
  Transmission Date: 20110219
  Serious: No
  Sender: FDA-Public Use
  Company Number: US-WYE-H09708609

PATIENT
  Age: 38 Year
  Sex: Female

DRUGS (1)
  1. ALAVERT [Suspect]

REACTIONS (2)
  - ENERGY INCREASED [None]
  - PSYCHOMOTOR HYPERACTIVITY [None]
